FAERS Safety Report 16963004 (Version 6)
Quarter: 2020Q3

REPORT INFORMATION
  Report Type: Report from Study
  Country: JP (occurrence: JP)
  Receive Date: 20191025
  Receipt Date: 20200720
  Transmission Date: 20201102
  Serious: Yes (Hospitalization, Other)
  Sender: FDA-Public Use
  Company Number: JP-BRISTOL-MYERS SQUIBB COMPANY-BMS-2019-024549

PATIENT
  Age: 67 Year
  Sex: Male
  Weight: 70 kg

DRUGS (13)
  1. YERVOY [Suspect]
     Active Substance: IPILIMUMAB
     Indication: MALIGNANT MELANOMA
     Dosage: 3 MILLIGRAM/KILOGRAM
     Route: 041
     Dates: start: 20181218, end: 20190108
  2. YERVOY [Suspect]
     Active Substance: IPILIMUMAB
     Dosage: 3 MILLIGRAM/KILOGRAM
     Route: 041
     Dates: start: 20181205, end: 20181205
  3. BAKTAR [Suspect]
     Active Substance: SULFAMETHOXAZOLE\TRIMETHOPRIM
     Indication: PNEUMOCYSTIS JIROVECII PNEUMONIA
     Dosage: UNK UNK, QD
     Route: 048
     Dates: start: 20181218, end: 20190108
  4. PREDONINE [Suspect]
     Active Substance: PREDNISOLONE
     Indication: PRODUCT USED FOR UNKNOWN INDICATION
     Dosage: 70 MILLIGRAM
     Route: 065
     Dates: start: 20181217
  5. PREDONINE [Suspect]
     Active Substance: PREDNISOLONE
     Dosage: 60 MILLIGRAM
     Route: 065
     Dates: start: 20190106
  6. NIVOLUMAB [Suspect]
     Active Substance: NIVOLUMAB
     Indication: MALIGNANT MELANOMA
     Dosage: UNK
     Route: 041
     Dates: end: 20181112
  7. NIVOLUMAB [Suspect]
     Active Substance: NIVOLUMAB
     Dosage: 80 MILLIGRAM
     Route: 041
     Dates: start: 20181205, end: 20181205
  8. PREDONINE [Suspect]
     Active Substance: PREDNISOLONE
     Dosage: 50 MILLIGRAM
     Route: 065
     Dates: start: 20190113
  9. PREDONINE [Suspect]
     Active Substance: PREDNISOLONE
     Dosage: 10 MILLIGRAM
     Route: 065
     Dates: start: 20190213
  10. PREDONINE [Suspect]
     Active Substance: PREDNISOLONE
     Dosage: 40 MILLIGRAM
     Route: 065
     Dates: start: 20190126
  11. PREDONINE [Suspect]
     Active Substance: PREDNISOLONE
     Dosage: 20 MILLIGRAM
     Route: 065
     Dates: start: 20190205
  12. PREDONINE [Suspect]
     Active Substance: PREDNISOLONE
     Dosage: 30 MILLIGRAM
     Route: 065
  13. PREDONINE [Suspect]
     Active Substance: PREDNISOLONE
     Dosage: 0.5 MILLIGRAM
     Route: 065
     Dates: start: 20190223

REACTIONS (3)
  - Immune-mediated enterocolitis [Recovering/Resolving]
  - Liver disorder [Recovering/Resolving]
  - Adrenal insufficiency [Recovered/Resolved]

NARRATIVE: CASE EVENT DATE: 20181211
